FAERS Safety Report 15981421 (Version 1)
Quarter: 2019Q1

REPORT INFORMATION
  Report Type: Spontaneous
  Country: FR (occurrence: FR)
  Receive Date: 20190219
  Receipt Date: 20190219
  Transmission Date: 20190418
  Serious: Yes (Other)
  Sender: FDA-Public Use
  Company Number: FR-BAYER-2019-029727

PATIENT
  Age: 65 Year
  Sex: Female

DRUGS (4)
  1. ULTRAVIST [Suspect]
     Active Substance: IOPROMIDE
     Indication: X-RAY OF PELVIS AND HIP
     Dosage: UNK, ONCE
     Dates: start: 20181218
  2. HYALURONIC ACID [Suspect]
     Active Substance: HYALURONIC ACID
     Indication: OSTEOARTHRITIS
     Dosage: UNK
     Dates: start: 2012
  3. ENTOCORT [Concomitant]
     Active Substance: BUDESONIDE
     Dosage: 6 MG, QD
  4. DOLIPRANE [Concomitant]
     Active Substance: ACETAMINOPHEN
     Dosage: UNK

REACTIONS (15)
  - Injection site pain [None]
  - Dyspnoea [None]
  - Vision blurred [None]
  - Somnolence [None]
  - Angina pectoris [None]
  - Diarrhoea [None]
  - Arthralgia [None]
  - Fatigue [None]
  - Oropharyngeal pain [None]
  - Headache [None]
  - Inflammatory bowel disease [None]
  - Gait disturbance [None]
  - Sneezing [None]
  - Hordeolum [None]
  - Nausea [None]

NARRATIVE: CASE EVENT DATE: 201812
